FAERS Safety Report 4497446-2 (Version None)
Quarter: 2004Q4

REPORT INFORMATION
  Report Type: 
  Country: None (occurrence: None)
  Receive Date: 20041110
  Receipt Date: 20041006
  Transmission Date: 20050328
  Serious: Yes (Life-Threatening, Hospitalization)
  Sender: FDA-Public Use
  Company Number: US-MERCK-0410USA00866

PATIENT
  Age: 63 Year
  Sex: Female

DRUGS (12)
  1. VIOXX [Suspect]
     Indication: ARTHRITIS
     Route: 048
     Dates: start: 20030501, end: 20041001
  2. VIOXX [Suspect]
     Indication: BACK PAIN
     Route: 048
     Dates: start: 20030501, end: 20041001
  3. MAXAIR [Concomitant]
     Route: 065
  4. IMITREX [Concomitant]
     Route: 065
  5. LOMOTIL [Concomitant]
     Route: 065
  6. PRILOSEC [Concomitant]
     Route: 065
  7. ZOCOR [Concomitant]
     Route: 065
  8. LASIX [Concomitant]
     Route: 065
  9. XANAX [Concomitant]
     Route: 065
  10. [THERAPY UNSPECIFIED] [Concomitant]
     Route: 065
  11. KLOR-CON [Concomitant]
     Route: 065
  12. NEURONTIN [Concomitant]
     Route: 065

REACTIONS (3)
  - AORTIC ANEURYSM [None]
  - HYPERTENSION [None]
  - OEDEMA PERIPHERAL [None]
